FAERS Safety Report 6390928-8 (Version None)
Quarter: 2009Q4

REPORT INFORMATION
  Report Type: 
  Country: None (occurrence: None)
  Receive Date: 20091003
  Receipt Date: 20090922
  Transmission Date: 20100525
  Serious: Yes (Hospitalization, Disabling)
  Sender: FDA-Public Use
  Company Number: A-CH2009-26109

PATIENT
  Age: 31 Year
  Sex: Male
  Weight: 0.0575 kg

DRUGS (2)
  1. ZAVESC          (MIGLUSTAT  EU) [Suspect]
     Indication: LIPIDOSIS
     Dosage: 200 MG, TID, ORAL; 100 MG, TID, ORAL3
     Route: 048
     Dates: end: 20090101
  2. ZAVESC          (MIGLUSTAT  EU) [Suspect]
     Indication: LIPIDOSIS
     Dosage: 200 MG, TID, ORAL; 100 MG, TID, ORAL3
     Route: 048
     Dates: start: 20080908

REACTIONS (8)
  - CONDITION AGGRAVATED [None]
  - DEHYDRATION [None]
  - DIARRHOEA [None]
  - DISEASE PROGRESSION [None]
  - LIPIDOSIS [None]
  - MUSCULAR WEAKNESS [None]
  - OFF LABEL USE [None]
  - WHEELCHAIR USER [None]
